APPROVED DRUG PRODUCT: PROCHLORPERAZINE MALEATE
Active Ingredient: PROCHLORPERAZINE MALEATE
Strength: EQ 10MG BASE
Dosage Form/Route: TABLET;ORAL
Application: A040207 | Product #002
Applicant: DURAMED PHARMACEUTICALS INC SUB BARR LABORATORIES INC
Approved: May 1, 1997 | RLD: No | RS: No | Type: DISCN